FAERS Safety Report 4889635-X (Version None)
Quarter: 2006Q1

REPORT INFORMATION
  Report Type: 
  Country: None (occurrence: None)
  Receive Date: 20060124
  Receipt Date: 20060110
  Transmission Date: 20060701
  Serious: Yes (Hospitalization, Disabling, Other)
  Sender: FDA-Public Use
  Company Number: BE-GLAXOSMITHKLINE-B0406409A

PATIENT
  Age: 38 Year
  Sex: Female

DRUGS (1)
  1. LAMICTAL [Suspect]
     Indication: MIGRAINE WITH AURA
     Route: 048
     Dates: start: 20051216, end: 20060103

REACTIONS (5)
  - PARAESTHESIA [None]
  - PHOTOSENSITIVITY REACTION [None]
  - RASH GENERALISED [None]
  - URTICARIA [None]
  - URTICARIA GENERALISED [None]
